FAERS Safety Report 7332556-3 (Version None)
Quarter: 2011Q1

REPORT INFORMATION
  Report Type: 
  Country: None (occurrence: None)
  Receive Date: 20110304
  Receipt Date: 20110222
  Transmission Date: 20110831
  Serious: Yes (Other)
  Sender: FDA-Public Use
  Company Number: PHFR2011GB01498

PATIENT

DRUGS (1)
  1. EXJADE [Suspect]
     Dosage: 20 MG/KG PER DAY
     Dates: start: 20101101

REACTIONS (2)
  - GASTROINTESTINAL DISORDER [None]
  - DIARRHOEA [None]
